FAERS Safety Report 6702830-X (Version None)
Quarter: 2010Q2

REPORT INFORMATION
  Report Type: 
  Country: None (occurrence: None)
  Receive Date: 20100429
  Receipt Date: 20100429
  Transmission Date: 20101027
  Serious: No
  Sender: FDA-Public Use
  Company Number: None

PATIENT
  Sex: Female
  Weight: 58.0604 kg

DRUGS (3)
  1. FANAPT [Suspect]
     Indication: BIPOLAR I DISORDER
     Dosage: 1 MG BID PO
     Route: 048
     Dates: start: 20100315, end: 20100322
  2. LAMICTAL [Concomitant]
  3. MIRAPEX [Concomitant]

REACTIONS (5)
  - APHONIA [None]
  - CONFUSIONAL STATE [None]
  - DISORIENTATION [None]
  - MEMORY IMPAIRMENT [None]
  - SPASMODIC DYSPHONIA [None]
